FAERS Safety Report 7015190-4 (Version None)
Quarter: 2010Q3

REPORT INFORMATION
  Report Type: 
  Country: None (occurrence: None)
  Receive Date: 20100927
  Receipt Date: 20100917
  Transmission Date: 20110219
  Serious: Yes (Disabling)
  Sender: FDA-Public Use
  Company Number: US-SANOFI-AVENTIS-2010SA057148

PATIENT
  Sex: Male

DRUGS (2)
  1. PLAVIX [Suspect]
     Indication: ANTICOAGULANT THERAPY
     Route: 065
     Dates: start: 20100910
  2. ANALGESICS [Concomitant]

REACTIONS (4)
  - CONDITION AGGRAVATED [None]
  - FEELING COLD [None]
  - PAIN IN EXTREMITY [None]
  - PARAESTHESIA [None]
